FAERS Safety Report 4510544-X (Version None)
Quarter: 2004Q4

REPORT INFORMATION
  Report Type: 
  Country: None (occurrence: None)
  Receive Date: 20041122
  Receipt Date: 20041108
  Transmission Date: 20050328
  Serious: Yes (Hospitalization)
  Sender: FDA-Public Use
  Company Number: 210300

PATIENT
  Age: 44 Year
  Sex: Female
  Weight: 108.8 kg

DRUGS (3)
  1. RAPTIVA [Suspect]
     Indication: PSORIASIS
     Dosage: 125 MG, SINGLE , SUBCUTANEOUS
     Route: 058
     Dates: start: 20041022, end: 20041101
  2. TOPROL (METOPROLOL SUCCINATE0 [Concomitant]
  3. PREMARIN [Concomitant]

REACTIONS (7)
  - CEREBROVASCULAR ACCIDENT [None]
  - FACIAL PALSY [None]
  - INFLUENZA LIKE ILLNESS [None]
  - MUSCLE TWITCHING [None]
  - PLATELET COUNT INCREASED [None]
  - STOMACH DISCOMFORT [None]
  - VISION BLURRED [None]
